FAERS Safety Report 9958536 (Version 3)
Quarter: 2014Q2

REPORT INFORMATION
  Report Type: Report from Study
  Country: TR (occurrence: TR)
  Receive Date: 20140305
  Receipt Date: 20140609
  Transmission Date: 20141212
  Serious: Yes (Hospitalization)
  Sender: FDA-Public Use
  Company Number: TR-ROCHE-1358681

PATIENT
  Age: 67 Year
  Sex: Female

DRUGS (7)
  1. PEG-INTERFERON ALFA 2A [Suspect]
     Indication: CHRONIC HEPATITIS C
     Route: 058
     Dates: start: 20130201
  2. RIBAVIRIN [Suspect]
     Indication: CHRONIC HEPATITIS C
     Dosage: TRADE NAME: VIRON
     Route: 048
     Dates: start: 20130201
  3. TELAPREVIR [Suspect]
     Indication: CHRONIC HEPATITIS C
     Dosage: TRADE NAME: INCIVO
     Route: 048
     Dates: start: 20130201
  4. PROTINUM [Concomitant]
     Route: 048
     Dates: start: 20130412
  5. EKLIPS PLUS [Concomitant]
     Indication: HYPERTENSION
     Route: 048
  6. PAROL (TURKEY) [Concomitant]
     Indication: ANALGESIC THERAPY
     Route: 048
     Dates: start: 20130412
  7. METPAMID [Concomitant]
     Indication: NAUSEA
     Route: 048
     Dates: start: 20130412

REACTIONS (1)
  - Nausea [Recovered/Resolved]
